FAERS Safety Report 9750344 (Version 1)
Quarter: 2013Q4

REPORT INFORMATION
  Report Type: Spontaneous
  Country: US (occurrence: US)
  Receive Date: 20131212
  Receipt Date: 20131212
  Transmission Date: 20140711
  Serious: No
  Sender: FDA-Public Use
  Company Number: US-ENDO PHARMACEUTICALS INC.-BUTA20120010

PATIENT
  Sex: Female

DRUGS (2)
  1. BUTALBITAL/ACETAMINOPHEN/CAFFEINE TABLETS [Suspect]
     Indication: HEADACHE
     Dosage: UNKNOWN
     Route: 048
     Dates: start: 2012
  2. BUTALBITAL/ACETAMINOPHEN/CAFFEINE [Concomitant]
     Indication: HEADACHE
     Dosage: UNKNOWN
     Route: 048
     Dates: start: 1997, end: 2012

REACTIONS (2)
  - Drug diversion [Unknown]
  - Drug ineffective [Unknown]
